APPROVED DRUG PRODUCT: METOPROLOL TARTRATE
Active Ingredient: METOPROLOL TARTRATE
Strength: 1MG/ML
Dosage Form/Route: INJECTABLE;INJECTION
Application: A204205 | Product #001 | TE Code: AP
Applicant: GLAND PHARMA LTD
Approved: Aug 27, 2014 | RLD: No | RS: No | Type: RX